FAERS Safety Report 23568983 (Version 6)
Quarter: 2025Q2

REPORT INFORMATION
  Report Type: Report from Study
  Country: ZA (occurrence: ZA)
  Receive Date: 20240227
  Receipt Date: 20250618
  Transmission Date: 20250717
  Serious: Yes (Other)
  Sender: TAKEDA
  Company Number: ZA-TAKEDA-2023TUS111145

PATIENT
  Sex: Female

DRUGS (2)
  1. VEDOLIZUMAB [Suspect]
     Active Substance: VEDOLIZUMAB
     Indication: Crohn^s disease
     Dates: start: 20230929, end: 20250414
  2. HUMIRA [Concomitant]
     Active Substance: ADALIMUMAB
     Dosage: 40 MILLIGRAM, 1/WEEK
     Dates: start: 202209

REACTIONS (7)
  - Crohn^s disease [Unknown]
  - Dry skin [Unknown]
  - Skin atrophy [Unknown]
  - Pain of skin [Unknown]
  - Influenza [Unknown]
  - Post procedural complication [Unknown]
  - Inappropriate schedule of product administration [Recovered/Resolved]
